FAERS Safety Report 9806522 (Version 3)
Quarter: 2014Q1

REPORT INFORMATION
  Report Type: Spontaneous
  Country: JP (occurrence: JP)
  Receive Date: 20140109
  Receipt Date: 20140211
  Transmission Date: 20141002
  Serious: Yes (Other)
  Sender: FDA-Public Use
  Company Number: JP-PFIZER INC-2014005387

PATIENT
  Age: 67 Year
  Sex: Female

DRUGS (12)
  1. LYRICA [Suspect]
     Dosage: 50 MG, 2X/DAY, AFTER BREAKFAST AND DINNER
     Route: 048
     Dates: start: 20131203, end: 20131204
  2. SAIREI-TO [Suspect]
     Dosage: 3 G, 3X/DAY, BEFORE MEALS
     Route: 048
     Dates: start: 20131203, end: 20131204
  3. ADOAIR [Concomitant]
     Dosage: UNK
  4. KLARICID [Concomitant]
     Dosage: UNK
  5. SINGULAIR [Concomitant]
     Dosage: UNK
  6. ASTHPHYLLIN [Concomitant]
     Dosage: UNK
  7. MUCOSOLVAN [Concomitant]
     Dosage: UNK
  8. TOCLASE [Concomitant]
     Dosage: UNK
  9. TRANSAMIN [Concomitant]
     Dosage: UNK
  10. ONON [Concomitant]
     Dosage: UNK
  11. ALESION [Concomitant]
     Dosage: UNK
  12. NEUROTROPIN [Concomitant]
     Dosage: 8 IU, 2X/DAY, AFTER BREAKFAST AND DINNER
     Dates: start: 20131203, end: 20131204

REACTIONS (6)
  - Liver disorder [Recovered/Resolved]
  - Gamma-glutamyltransferase increased [Not Recovered/Not Resolved]
  - Blood alkaline phosphatase increased [Not Recovered/Not Resolved]
  - Aspartate aminotransferase increased [Recovered/Resolved]
  - Alanine aminotransferase increased [Recovered/Resolved]
  - Blood lactate dehydrogenase increased [Not Recovered/Not Resolved]
